FAERS Safety Report 6539562-7 (Version None)
Quarter: 2010Q1

REPORT INFORMATION
  Report Type: 
  Country: None (occurrence: None)
  Receive Date: 20100115
  Receipt Date: 20100112
  Transmission Date: 20100710
  Serious: Yes (Other)
  Sender: FDA-Public Use
  Company Number: B0625602A

PATIENT
  Age: 18 Month
  Sex: Male
  Weight: 8.8 kg

DRUGS (5)
  1. ZIDOVUDINE [Suspect]
     Indication: HIV INFECTION
     Dosage: 80MG TWICE PER DAY
     Route: 048
     Dates: start: 20091207
  2. LAMIVUDINE [Suspect]
     Indication: HIV INFECTION
     Dosage: 30MG TWICE PER DAY
     Route: 048
     Dates: start: 20091207
  3. NEVIRAPINE [Suspect]
     Indication: HIV INFECTION
     Dosage: 90MG TWICE PER DAY
     Route: 048
     Dates: start: 20091207
  4. COTRIMOXAZOLE [Concomitant]
  5. TONOFERON [Concomitant]

REACTIONS (6)
  - ANAEMIA [None]
  - HAEMOGLOBIN DECREASED [None]
  - IRRITABILITY [None]
  - LISTLESS [None]
  - PALLOR [None]
  - PYREXIA [None]
